FAERS Safety Report 6252979-3 (Version None)
Quarter: 2009Q2

REPORT INFORMATION
  Report Type: 
  Country: None (occurrence: None)
  Receive Date: 20090629
  Receipt Date: 20090629
  Transmission Date: 20091009
  Serious: Yes (Other)
  Sender: FDA-Public Use
  Company Number: None

PATIENT
  Sex: Female
  Weight: 76.6579 kg

DRUGS (1)
  1. TOPIRAMATE [Suspect]
     Indication: MIGRAINE PROPHYLAXIS
     Dosage: 200MG BID PO
     Route: 048
     Dates: start: 20090402, end: 20090618

REACTIONS (7)
  - ANOREXIA [None]
  - CONDITION AGGRAVATED [None]
  - FATIGUE [None]
  - MIGRAINE [None]
  - NAUSEA [None]
  - PRODUCT SUBSTITUTION ISSUE [None]
  - SOMNOLENCE [None]
